FAERS Safety Report 10821029 (Version 1)
Quarter: 2015Q1

REPORT INFORMATION
  Report Type: Spontaneous
  Country: US (occurrence: US)
  Receive Date: 20150218
  Receipt Date: 20150218
  Transmission Date: 20150721
  Serious: No
  Sender: FDA-Public Use
  Company Number: US-ELI_LILLY_AND_COMPANY-US201502000731

PATIENT
  Sex: Female

DRUGS (13)
  1. HUMALOG [Suspect]
     Active Substance: INSULIN LISPRO
     Dosage: 20 U, QD
     Route: 065
     Dates: start: 2008
  2. HUMALOG [Suspect]
     Active Substance: INSULIN LISPRO
     Dosage: 40 U, EACH EVENING
     Route: 065
     Dates: start: 2008
  3. HUMALOG [Suspect]
     Active Substance: INSULIN LISPRO
     Dosage: 40 U, EACH EVENING
     Route: 065
     Dates: start: 2008
  4. HUMALOG [Suspect]
     Active Substance: INSULIN LISPRO
     Dosage: UNK UNK, PRN
     Route: 065
     Dates: start: 2008
  5. HUMALOG [Suspect]
     Active Substance: INSULIN LISPRO
     Dosage: UNK UNK, PRN
     Route: 065
     Dates: start: 2008
  6. HUMALOG [Suspect]
     Active Substance: INSULIN LISPRO
     Dosage: 27 U, EACH MORNING
     Route: 065
     Dates: start: 2008
  7. HUMALOG [Suspect]
     Active Substance: INSULIN LISPRO
     Dosage: 20 U, QD
     Route: 065
     Dates: start: 2008
  8. HUMALOG [Suspect]
     Active Substance: INSULIN LISPRO
     Dosage: 27 U, EACH MORNING
     Route: 065
     Dates: start: 2008
  9. LANTUS [Concomitant]
     Active Substance: INSULIN GLARGINE
  10. HUMALOG [Suspect]
     Active Substance: INSULIN LISPRO
     Dosage: 20 U, QD
     Route: 065
     Dates: start: 2008
  11. HUMALOG [Suspect]
     Active Substance: INSULIN LISPRO
     Dosage: UNK UNK, PRN
     Route: 065
     Dates: start: 2008
  12. HUMALOG [Suspect]
     Active Substance: INSULIN LISPRO
     Indication: TYPE 2 DIABETES MELLITUS
     Dosage: 27 U, EACH MORNING
     Route: 065
     Dates: start: 2008
  13. HUMALOG [Suspect]
     Active Substance: INSULIN LISPRO
     Dosage: 40 U, EACH EVENING
     Route: 065
     Dates: start: 2008

REACTIONS (1)
  - Underdose [Unknown]
